FAERS Safety Report 9820420 (Version 1)
Quarter: 2014Q1

REPORT INFORMATION
  Report Type: Spontaneous
  Country: US (occurrence: None)
  Receive Date: 20140114
  Receipt Date: 20140114
  Transmission Date: 20141002
  Serious: Yes (Hospitalization, Disabling)
  Sender: FDA-Public Use
  Company Number: None

PATIENT
  Sex: Female
  Weight: 70.31 kg

DRUGS (7)
  1. POTASSIUM [Suspect]
     Dosage: 10 NIEQ 2 PILLS TWICE DAILY BY MOUTH
     Route: 048
     Dates: start: 20131129, end: 20131202
  2. HYDROCHOROTHIAZIDE [Concomitant]
  3. OYSTER SHELL [Concomitant]
  4. ALENDRONATE SODIUM [Concomitant]
  5. NAPROXEN PAIN + FEVER [Concomitant]
  6. POTASSIUM [Concomitant]
  7. NIFEDIPINE [Concomitant]

REACTIONS (5)
  - Pain [None]
  - Joint swelling [None]
  - Abasia [None]
  - Sensation of heaviness [None]
  - Local swelling [None]
